FAERS Safety Report 6550775-0 (Version None)
Quarter: 2010Q1

REPORT INFORMATION
  Report Type: 
  Country: None (occurrence: None)
  Receive Date: 20100125
  Receipt Date: 20100119
  Transmission Date: 20100710
  Serious: Yes (Death)
  Sender: FDA-Public Use
  Company Number: PHEH2010US00507

PATIENT
  Sex: Female

DRUGS (4)
  1. RECLAST [Suspect]
     Dosage: 5 MG YEARLY
     Route: 042
  2. METHOTREXATE [Concomitant]
  3. CALCIUM [Concomitant]
     Indication: OSTEOPOROSIS
  4. VITAMIN D [Concomitant]
     Indication: OSTEOPOROSIS

REACTIONS (1)
  - DEATH [None]
